FAERS Safety Report 22007741 (Version 1)
Quarter: 2023Q1

REPORT INFORMATION
  Report Type: Spontaneous
  Country: CN (occurrence: CN)
  Receive Date: 20230218
  Receipt Date: 20230218
  Transmission Date: 20230418
  Serious: Yes (Other)
  Sender: FDA-Public Use
  Company Number: CN-TAKEDA-2023TUS016644

PATIENT
  Sex: Female

DRUGS (2)
  1. ENANTONE LP [Suspect]
     Active Substance: LEUPROLIDE ACETATE
     Indication: Leiomyoma
     Dosage: 11.25 MILLIGRAM, SINGLE
     Route: 042
  2. ENANTONE LP [Suspect]
     Active Substance: LEUPROLIDE ACETATE
     Indication: Adenomyosis

REACTIONS (1)
  - Urogenital haemorrhage [Not Recovered/Not Resolved]

NARRATIVE: CASE EVENT DATE: 20230121
